FAERS Safety Report 8196447-0 (Version None)
Quarter: 2012Q1

REPORT INFORMATION
  Report Type: 
  Country: None (occurrence: None)
  Receive Date: 20120307
  Receipt Date: 20120307
  Transmission Date: 20120608
  Serious: Yes (Hospitalization)
  Sender: FDA-Public Use
  Company Number: None

PATIENT
  Age: 65 Year
  Sex: Male
  Weight: 69.9 kg

DRUGS (4)
  1. ROMIDEPSIN INTRAVENOUS INJECTION RECONSTITUTED 10 MG CELGENE CORP [Suspect]
     Indication: T-CELL LYMPHOMA
     Dosage: 26 MG (14 MG/M2) IV X 3 DOSES DAY 1, DAY 8, DAY 15 INTRAVENOUS 041
     Route: 042
     Dates: start: 20120120
  2. ROMIDEPSIN INTRAVENOUS INJECTION RECONSTITUTED 10 MG CELGENE CORP [Suspect]
     Indication: T-CELL LYMPHOMA
     Dosage: 26 MG (14 MG/M2) IV X 3 DOSES DAY 1, DAY 8, DAY 15 INTRAVENOUS 041
     Route: 042
     Dates: start: 20120203
  3. ROMIDEPSIN INTRAVENOUS INJECTION RECONSTITUTED 10 MG CELGENE CORP [Suspect]
     Indication: T-CELL LYMPHOMA
     Dosage: 26 MG (14 MG/M2) IV X 3 DOSES DAY 1, DAY 8, DAY 15 INTRAVENOUS 041
     Route: 042
     Dates: start: 20120127
  4. ROMIDEPSIN INTRAVENOUS INJECTION RECONSTITUTED 10 MG CELGENE CORP [Suspect]
     Indication: T-CELL LYMPHOMA
     Dosage: 19 MG DAY 28 INTRAVENOUS 041
     Route: 042
     Dates: start: 20120217

REACTIONS (9)
  - ASPARTATE AMINOTRANSFERASE INCREASED [None]
  - BLOOD ALKALINE PHOSPHATASE INCREASED [None]
  - CHILLS [None]
  - ABDOMINAL DISTENSION [None]
  - ACUTE HEPATIC FAILURE [None]
  - ALANINE AMINOTRANSFERASE INCREASED [None]
  - PYREXIA [None]
  - ABDOMINAL PAIN [None]
  - CONSTIPATION [None]
